FAERS Safety Report 9261737 (Version 10)
Quarter: 2015Q1

REPORT INFORMATION
  Report Type: Spontaneous
  Country: US (occurrence: US)
  Receive Date: 20130429
  Receipt Date: 20150330
  Transmission Date: 20150721
  Serious: Yes (Hospitalization, Other)
  Sender: FDA-Public Use
  Company Number: US-009507513-1304USA014858

PATIENT
  Sex: Male
  Weight: 79.82 kg

DRUGS (2)
  1. LISINOPRIL. [Concomitant]
     Active Substance: LISINOPRIL
     Indication: HYPERTENSION
     Dosage: UNK
     Dates: start: 2000
  2. PROPECIA [Suspect]
     Active Substance: FINASTERIDE
     Indication: ANDROGENETIC ALOPECIA
     Dosage: 1 MG, QD
     Route: 048
     Dates: start: 20040926, end: 20110612

REACTIONS (52)
  - Paraesthesia [Unknown]
  - Ligament operation [Unknown]
  - Radical prostatectomy [Unknown]
  - Non-cardiac chest pain [Unknown]
  - Prostatic specific antigen increased [Unknown]
  - Pollakiuria [Recovered/Resolved]
  - Perineal pain [Recovered/Resolved]
  - Urinary retention [Unknown]
  - Rotator cuff repair [Unknown]
  - Eyelid operation [Unknown]
  - Prostatitis [Unknown]
  - Vision blurred [Unknown]
  - Urinary retention [Unknown]
  - Urine flow decreased [Unknown]
  - Benign prostatic hyperplasia [Unknown]
  - Mass [Recovered/Resolved]
  - Micturition urgency [Unknown]
  - Penile curvature [Unknown]
  - Dysuria [Unknown]
  - Ligament rupture [Unknown]
  - Depression [Unknown]
  - Left ventricular hypertrophy [Unknown]
  - Urinary incontinence [Unknown]
  - Metaplasia [Unknown]
  - Constipation [Unknown]
  - Urinary straining [Unknown]
  - Prostate cancer [Unknown]
  - Incision site complication [Unknown]
  - Haematospermia [Unknown]
  - Nocturia [Unknown]
  - Muscle atrophy [Unknown]
  - Spinal osteoarthritis [Unknown]
  - Ejaculation failure [Unknown]
  - Ectropion [Unknown]
  - Hypertension [Unknown]
  - Urethral stricture postoperative [Unknown]
  - Orgasm abnormal [Unknown]
  - Erectile dysfunction [Unknown]
  - Bladder neck suspension [Unknown]
  - Eyelid operation [Unknown]
  - Biopsy prostate [Unknown]
  - Decreased appetite [Recovering/Resolving]
  - Lymphadenectomy [Unknown]
  - Urethral stricture postoperative [Unknown]
  - Hypoaesthesia [Unknown]
  - Biopsy prostate [Unknown]
  - Nocturia [Unknown]
  - Anaemia postoperative [Unknown]
  - Penile pain [Unknown]
  - Adverse event [Unknown]
  - Cognitive disorder [Not Recovered/Not Resolved]
  - Sexual dysfunction [Not Recovered/Not Resolved]

NARRATIVE: CASE EVENT DATE: 2005
